FAERS Safety Report 5425810-3 (Version None)
Quarter: 2007Q3

REPORT INFORMATION
  Report Type: 
  Country: None (occurrence: None)
  Receive Date: 20070731
  Receipt Date: 20070508
  Transmission Date: 20080115
  Serious: No
  Sender: FDA-Public Use
  Company Number: US200704001843

PATIENT
  Age: 52 Year
  Sex: Female
  Weight: 99.8 kg

DRUGS (10)
  1. BYETTA [Suspect]
     Indication: TYPE 2 DIABETES MELLITUS
     Dosage: 5 UG, DAILY (1/D), SUBCUTANEOUS ; 5 UG, 2/D, SUBCUTANEOUS ; 10 UG, EACH MORNING, SUBCUTANEOUS
     Route: 058
     Dates: start: 20070405, end: 20070401
  2. BYETTA [Suspect]
     Indication: TYPE 2 DIABETES MELLITUS
     Dosage: 5 UG, DAILY (1/D), SUBCUTANEOUS ; 5 UG, 2/D, SUBCUTANEOUS ; 10 UG, EACH MORNING, SUBCUTANEOUS
     Route: 058
     Dates: start: 20070401, end: 20070504
  3. BYETTA [Suspect]
     Indication: TYPE 2 DIABETES MELLITUS
     Dosage: 5 UG, DAILY (1/D), SUBCUTANEOUS ; 5 UG, 2/D, SUBCUTANEOUS ; 10 UG, EACH MORNING, SUBCUTANEOUS
     Route: 058
     Dates: start: 20070505
  4. EXENATIDE 10MCG PEN, DISPOSABLE DEVICE (EXENATIDE PEN (10MCG)) PEN,DIS [Concomitant]
  5. GLIPIZIDE [Concomitant]
  6. HUMALOG PEN [Concomitant]
  7. PIOGILTAZONE (PIOGLITAZONE) [Concomitant]
  8. LANTUS [Concomitant]
  9. INSULIN (INSULIN) [Concomitant]
  10. METFORMIN HCL [Concomitant]

REACTIONS (5)
  - BLOOD GLUCOSE INCREASED [None]
  - DYSPEPSIA [None]
  - FATIGUE [None]
  - NAUSEA [None]
  - RETCHING [None]
